FAERS Safety Report 24156276 (Version 2)
Quarter: 2024Q3

REPORT INFORMATION
  Report Type: Report from Study
  Country: FR (occurrence: FR)
  Receive Date: 20240731
  Receipt Date: 20240819
  Transmission Date: 20241017
  Serious: Yes (Other)
  Sender: NOVARTIS
  Company Number: FR-002147023-NVSC2024FR154814

PATIENT
  Sex: Female

DRUGS (2)
  1. VIJOICE [Suspect]
     Active Substance: ALPELISIB
     Indication: Overgrowth syndrome
     Dosage: 250 MG, QD
     Route: 048
     Dates: start: 20240516, end: 20240606
  2. VIJOICE [Suspect]
     Active Substance: ALPELISIB
     Dosage: 125 MG, QD
     Route: 048
     Dates: start: 20240607

REACTIONS (1)
  - Acute kidney injury [Not Recovered/Not Resolved]

NARRATIVE: CASE EVENT DATE: 20240606
